FAERS Safety Report 4355731-9 (Version None)
Quarter: 2004Q2

REPORT INFORMATION
  Report Type: 
  Country: None (occurrence: None)
  Receive Date: 20040510
  Receipt Date: 20040510
  Transmission Date: 20050107
  Serious: Yes (Death, Life-Threatening, Hospitalization)
  Sender: FDA-Public Use
  Company Number: None

PATIENT
  Age: 90 Year
  Sex: Male
  Weight: 78 kg

DRUGS (6)
  1. DIGOXIN [Suspect]
  2. AGGRENOX [Suspect]
     Dosage: 1 CAPSULE PO BID
     Route: 048
  3. RISPERDAL [Concomitant]
  4. SYNTHROID [Concomitant]
  5. VANCO [Concomitant]
  6. CLAFERAN [Concomitant]

REACTIONS (9)
  - BLOOD CREATININE INCREASED [None]
  - BRADYCARDIA [None]
  - CARDIOGENIC SHOCK [None]
  - GASTROINTESTINAL HAEMORRHAGE [None]
  - HAEMODIALYSIS [None]
  - HYPERKALAEMIA [None]
  - HYPOTENSION [None]
  - OLIGURIA [None]
  - THERAPEUTIC AGENT TOXICITY [None]
